FAERS Safety Report 23160128 (Version 1)
Quarter: 2023Q4

REPORT INFORMATION
  Report Type: Report from Study
  Country: US (occurrence: US)
  Receive Date: 20231108
  Receipt Date: 20231108
  Transmission Date: 20240110
  Serious: Yes (Other)
  Sender: FDA-Public Use
  Company Number: US-MYLANLABS-2023M1117596

PATIENT
  Age: 4 Year
  Sex: Male

DRUGS (16)
  1. PREDNISONE [Suspect]
     Active Substance: PREDNISONE
     Indication: Nephrotic syndrome
     Dosage: UNK
     Route: 065
  2. PREDNISONE [Suspect]
     Active Substance: PREDNISONE
     Indication: Glomerulonephritis minimal lesion
  3. TACROLIMUS [Suspect]
     Active Substance: TACROLIMUS
     Indication: Nephrotic syndrome
     Dosage: UNK
     Route: 065
  4. TACROLIMUS [Suspect]
     Active Substance: TACROLIMUS
     Indication: Glomerulonephritis minimal lesion
  5. MYCOPHENOLATE MOFETIL [Suspect]
     Active Substance: MYCOPHENOLATE MOFETIL
     Indication: Nephrotic syndrome
     Dosage: UNK
     Route: 065
  6. MYCOPHENOLATE MOFETIL [Suspect]
     Active Substance: MYCOPHENOLATE MOFETIL
     Indication: Glomerulonephritis minimal lesion
  7. PIOGLITAZONE [Suspect]
     Active Substance: PIOGLITAZONE
     Indication: Nephrotic syndrome
     Dosage: 15 MILLIGRAM, QD
     Route: 048
  8. PIOGLITAZONE [Suspect]
     Active Substance: PIOGLITAZONE
     Indication: Glomerulonephritis minimal lesion
  9. LISINOPRIL [Suspect]
     Active Substance: LISINOPRIL
     Indication: Nephrotic syndrome
     Dosage: UNK
     Route: 065
  10. LISINOPRIL [Suspect]
     Active Substance: LISINOPRIL
     Indication: Glomerulonephritis minimal lesion
  11. LOSARTAN [Suspect]
     Active Substance: LOSARTAN
     Indication: Nephrotic syndrome
     Dosage: UNK
     Route: 065
  12. LOSARTAN [Suspect]
     Active Substance: LOSARTAN
     Indication: Glomerulonephritis minimal lesion
  13. RITUXIMAB [Suspect]
     Active Substance: RITUXIMAB
     Indication: Nephrotic syndrome
     Dosage: UNK
     Route: 065
  14. RITUXIMAB [Suspect]
     Active Substance: RITUXIMAB
     Indication: Glomerulonephritis minimal lesion
  15. ACTHAR [Suspect]
     Active Substance: CORTICOTROPIN
     Indication: Nephrotic syndrome
     Dosage: UNK
     Route: 065
  16. ACTHAR [Suspect]
     Active Substance: CORTICOTROPIN
     Indication: Glomerulonephritis minimal lesion

REACTIONS (2)
  - Drug ineffective [Unknown]
  - Off label use [Unknown]
